FAERS Safety Report 6025814-6 (Version None)
Quarter: 2008Q4

REPORT INFORMATION
  Report Type: 
  Country: None (occurrence: None)
  Receive Date: 20081224
  Receipt Date: 20081217
  Transmission Date: 20090506
  Serious: Yes (Hospitalization)
  Sender: FDA-Public Use
  Company Number: 2008003308

PATIENT
  Age: 66 Year
  Sex: Male
  Weight: 88 kg

DRUGS (10)
  1. ERLOTINIB (ERLOTINIB)(TABLET)(ERLOTINIB) [Suspect]
     Indication: RENAL CELL CARCINOMA
     Dosage: (50 MG,QD),ORAL
     Route: 048
     Dates: start: 20080909
  2. SUNITINIB MALATE [Suspect]
     Indication: RENAL CELL CARCINOMA
     Dates: start: 20080909
  3. LIPITOR [Concomitant]
  4. LISINOPRIL [Concomitant]
  5. MINOCYCLINE HCL [Concomitant]
  6. NIACIN [Concomitant]
  7. PANTOPRAZOLE SODIUM [Concomitant]
  8. POTASSIUM CHLORIDE [Concomitant]
  9. ALEVE (CAPLET) [Concomitant]
  10. ALLOPURINOL [Concomitant]

REACTIONS (4)
  - DIARRHOEA [None]
  - FATIGUE [None]
  - HYPOTENSION [None]
  - RENAL FAILURE [None]
